FAERS Safety Report 6680724-6 (Version None)
Quarter: 2010Q2

REPORT INFORMATION
  Report Type: 
  Country: None (occurrence: None)
  Receive Date: 20100414
  Receipt Date: 20100330
  Transmission Date: 20101027
  Serious: Yes (Other)
  Sender: FDA-Public Use
  Company Number: PHHY2010MX20658

PATIENT
  Age: 56 Year
  Sex: Female

DRUGS (1)
  1. ACLASTA [Suspect]
     Indication: OSTEOPOROSIS
     Dosage: 5 MG, PER YEAR
     Route: 042
     Dates: start: 20100209

REACTIONS (6)
  - BONE PAIN [None]
  - CONJUNCTIVITIS [None]
  - EYE HAEMORRHAGE [None]
  - EYE IRRITATION [None]
  - INFLUENZA [None]
  - MYALGIA [None]
